FAERS Safety Report 4576184-1 (Version None)
Quarter: 2005Q1

REPORT INFORMATION
  Report Type: 
  Country: None (occurrence: None)
  Receive Date: 20050204
  Receipt Date: 20050126
  Transmission Date: 20050727
  Serious: Yes (Hospitalization, Other)
  Sender: FDA-Public Use
  Company Number: 2004105600

PATIENT
  Age: 73 Year
  Sex: Female
  Weight: 55.3 kg

DRUGS (10)
  1. LIPITOR [Suspect]
     Indication: HYPERLIPIDAEMIA
     Dosage: 10 MG (10 MG, 1 IN 1 D), ORAL
     Route: 048
     Dates: start: 20040508, end: 20041105
  2. CARVEDILOL [Suspect]
     Indication: HYPERTENSION
     Dosage: 20 MG (10 MG, 2 IN 1 D), ORAL
     Route: 048
     Dates: start: 20040427, end: 20041105
  3. ANTIHYPERTENSIVES                (ANTIHYPERTENSIVES) [Concomitant]
  4. FAMOTIDINE [Concomitant]
  5. VOGLIBOSE                 (VOGLIBOSE) [Concomitant]
  6. ACETYLSALICYLIC ACID SRT [Concomitant]
  7. GLIMEPIRIDE [Concomitant]
  8. ALL OTHER THERAPEUTIC PRODUCTS [Concomitant]
  9. CLOTIAZEPAM          (CLOTIAZEPAM) [Concomitant]
  10. PROPAFENONE HCL [Concomitant]

REACTIONS (9)
  - DEHYDRATION [None]
  - DIZZINESS [None]
  - DRUG INTERACTION POTENTIATION [None]
  - FEELING ABNORMAL [None]
  - HAEMODIALYSIS [None]
  - HYPERTENSION [None]
  - HYPOTENSION [None]
  - LOW DENSITY LIPOPROTEIN INCREASED [None]
  - PROCEDURAL COMPLICATION [None]
